FAERS Safety Report 4613833-3 (Version None)
Quarter: 2005Q1

REPORT INFORMATION
  Report Type: 
  Country: None (occurrence: None)
  Receive Date: 20050315
  Receipt Date: 20050307
  Transmission Date: 20050727
  Serious: Yes (Hospitalization)
  Sender: FDA-Public Use
  Company Number: 2005CG00483

PATIENT
  Age: 61 Year
  Sex: Female

DRUGS (4)
  1. ARIMIDEX [Suspect]
     Indication: BREAST CANCER
  2. CATAPRES [Suspect]
     Dates: end: 20050214
  3. DOXYCYCLINE [Suspect]
     Dates: end: 20050213
  4. LEVOTHYROXINE SODIUM [Suspect]

REACTIONS (2)
  - AUTOIMMUNE THROMBOCYTOPENIA [None]
  - CONDITION AGGRAVATED [None]
